FAERS Safety Report 7979799-3 (Version None)
Quarter: 2011Q4

REPORT INFORMATION
  Report Type: 
  Country: None (occurrence: None)
  Receive Date: 20111214
  Receipt Date: 20111207
  Transmission Date: 20120403
  Serious: Yes (Other)
  Sender: FDA-Public Use
  Company Number: CA-PURDUE-CAN_2007_0000375

PATIENT
  Sex: Male

DRUGS (85)
  1. OXYCONTIN [Suspect]
     Dosage: 7 TABLET, BID
     Route: 048
     Dates: start: 20010712, end: 20010822
  2. OXYCONTIN [Suspect]
     Dosage: 3 TABLET, BID
     Route: 048
     Dates: start: 20031204, end: 20040119
  3. OXYCONTIN [Suspect]
     Dosage: 1 TABLET, HS
     Route: 048
     Dates: start: 20040223, end: 20040304
  4. OXYCONTIN [Suspect]
     Dosage: UNK
     Route: 048
     Dates: start: 19960101, end: 20030101
  5. OXYCET [Suspect]
     Dosage: 1 TABLET, BID-TID
     Route: 048
     Dates: start: 20040122, end: 20040202
  6. SUPEUDOL [Suspect]
     Indication: ARTHRALGIA
     Dosage: 10-20 MG, PRN
     Route: 048
     Dates: start: 20010607, end: 20010712
  7. TYLENOL NO.1 [Suspect]
     Indication: TOOTHACHE
  8. BARBITURATES [Suspect]
     Indication: PRODUCT USED FOR UNKNOWN INDICATION
     Dosage: UNK
     Dates: start: 20040101, end: 20040101
  9. LORAZEPAM [Concomitant]
     Indication: INSOMNIA
     Dosage: 1 MG, BID PRN
     Route: 048
     Dates: start: 20030630, end: 20040119
  10. LORAZEPAM [Concomitant]
     Dosage: 1 MG, BID
     Route: 048
     Dates: start: 20040212, end: 20040531
  11. AMITRIPTYLINE HCL [Concomitant]
     Indication: PRODUCT USED FOR UNKNOWN INDICATION
     Dosage: 75 MG, HS
     Route: 048
     Dates: start: 20010908, end: 20020201
  12. CORTISONE ACETATE [Concomitant]
     Indication: ARTHRALGIA
  13. MARCAINE                           /00330101/ [Concomitant]
     Indication: PRODUCT USED FOR UNKNOWN INDICATION
     Dosage: UNK
     Dates: start: 20040101
  14. ANTIINFLAMMATORY AGENTS [Concomitant]
     Indication: ARTHRALGIA
  15. OXYCONTIN [Suspect]
     Dosage: 6 TABLET, DAILY
     Route: 048
     Dates: start: 20010712, end: 20010822
  16. HYDROMORPH CONTIN 12 MG [Suspect]
     Indication: ARTHRALGIA
     Dosage: 2 CAPSL, Q8H
     Route: 048
     Dates: start: 20040126, end: 20040223
  17. OXYCET [Suspect]
     Dosage: 1 TABLET, QID
     Route: 048
     Dates: start: 20040202
  18. TYLENOL NO.1 [Suspect]
     Indication: ARTHRALGIA
     Dosage: UNK
     Route: 048
     Dates: start: 20040301
  19. LORAZEPAM [Concomitant]
     Dosage: 2 MG, UNK
     Route: 048
     Dates: start: 20040531
  20. NORTRIPTYLINE HCL [Concomitant]
     Indication: PRODUCT USED FOR UNKNOWN INDICATION
     Dosage: UNK
     Dates: start: 20000713, end: 20010101
  21. EFFEXOR XR [Concomitant]
     Indication: PRODUCT USED FOR UNKNOWN INDICATION
     Dosage: 150 MG, DAILY
     Route: 048
     Dates: start: 20010315, end: 20010403
  22. EFFEXOR XR [Concomitant]
     Dosage: 225 MG, DAILY
     Route: 048
     Dates: start: 20010403, end: 20010901
  23. WELLBUTRIN [Concomitant]
     Indication: DEPRESSION
     Dosage: 100 MG, HS
     Route: 048
     Dates: start: 20030101
  24. VIOXX [Concomitant]
     Indication: PRODUCT USED FOR UNKNOWN INDICATION
     Dosage: UNK
     Dates: start: 20000713, end: 20010101
  25. CELEBREX [Concomitant]
     Indication: PRODUCT USED FOR UNKNOWN INDICATION
     Dosage: UNK
     Dates: start: 20000713, end: 20010101
  26. ALBUTEROL SULFATE AUTOHALER [Concomitant]
     Indication: ASTHMA
     Dosage: UNK PUFF, PRN
     Route: 055
     Dates: start: 20010504, end: 20040101
  27. OXYCONTIN [Suspect]
     Dosage: 3 TABLET, HS
     Route: 048
     Dates: start: 20010130, end: 20010503
  28. OXYCONTIN [Suspect]
     Dosage: 4 TABLET, TID
     Route: 048
     Dates: start: 20010503, end: 20010605
  29. OXYCONTIN [Suspect]
     Dosage: 6 TABLET, TID
     Route: 048
     Dates: start: 20011003, end: 20020725
  30. OXYCONTIN [Suspect]
     Dosage: 7 TABLET, BID
     Route: 048
     Dates: start: 20020725, end: 20021212
  31. OXYCONTIN [Suspect]
     Dosage: 4 TABLET, PM
     Route: 048
     Dates: start: 20031204, end: 20040119
  32. OXYCONTIN [Suspect]
     Dosage: 4 TABLET, HS
     Route: 048
     Dates: start: 20040119, end: 20040126
  33. HYDROMORPH CONTIN 12 MG [Suspect]
     Dosage: 3 CAPSL, Q8H
     Route: 048
     Dates: start: 20040223, end: 20051202
  34. DILAUDID 4 MG TABLETS [Suspect]
     Indication: ARTHRALGIA
     Dosage: 1 TABLET, UD
     Route: 048
     Dates: start: 20040223, end: 20040315
  35. DILAUDID 4 MG TABLETS [Suspect]
     Dosage: 1 TABLET, TID-QID PRN
     Route: 048
     Dates: start: 20040315
  36. SUPEUDOL [Suspect]
     Dosage: 20 MG, BID
     Route: 048
     Dates: start: 20010804, end: 20010901
  37. TYLENOL W/ CODEINE NO. 3 [Suspect]
     Indication: ARTHRALGIA
     Route: 048
  38. BACLOFEN [Concomitant]
     Indication: PRODUCT USED FOR UNKNOWN INDICATION
     Dosage: 10 MG, TID
     Route: 048
     Dates: start: 20010822, end: 20020201
  39. OXYCONTIN [Suspect]
     Indication: ARTHRALGIA
     Dosage: 3 TABLET, TID
     Route: 048
     Dates: start: 20010109, end: 20010130
  40. OXYCONTIN [Suspect]
     Indication: BREAKTHROUGH PAIN
     Dosage: 4 TABLET, BID
     Route: 048
     Dates: start: 20010130, end: 20010503
  41. OXYCONTIN [Suspect]
     Indication: ARTHRALGIA
     Dosage: 3 TABLET, BID
     Route: 048
     Dates: start: 20040119, end: 20040126
  42. OXYCONTIN [Suspect]
     Dosage: 2 TABLET, TID
     Route: 048
     Dates: start: 20040212, end: 20040223
  43. OXYCONTIN [Suspect]
     Indication: BREAKTHROUGH PAIN
     Dosage: 1 TABLET, BID
     Route: 048
     Dates: start: 20010109, end: 20010601
  44. HYDROMORPH CONTIN 6 MG [Suspect]
     Indication: ARTHRALGIA
     Dosage: 2 CAPSL, TID
     Route: 048
     Dates: start: 20040120, end: 20040126
  45. OXYCET [Suspect]
     Dosage: 1 TABLET, QID
     Route: 048
     Dates: start: 20031204, end: 20040122
  46. PERCOCET [Suspect]
     Indication: BREAKTHROUGH PAIN
     Dosage: UNK
     Route: 048
     Dates: start: 20000713, end: 20010101
  47. DEMEROL [Suspect]
     Indication: ARTHRALGIA
  48. SEROQUEL [Concomitant]
     Indication: DEPRESSION
     Dosage: 200 MG, UNK
     Route: 048
     Dates: start: 20020101
  49. CESAMET [Concomitant]
     Indication: ARTHRALGIA
     Route: 048
  50. MEFENAMIC ACID [Concomitant]
     Indication: PRODUCT USED FOR UNKNOWN INDICATION
     Dosage: 250 MG, UNK
     Route: 048
     Dates: start: 20060222, end: 20060101
  51. OXYCONTIN [Suspect]
     Dosage: 5 TABLET, TID
     Route: 048
     Dates: start: 20010605, end: 20010708
  52. OXYCONTIN [Suspect]
     Dosage: 6 TABLET, TID
     Route: 048
     Dates: start: 20010708, end: 20010712
  53. OXYCONTIN [Suspect]
     Dosage: 6 TABLET, PM
     Route: 048
     Dates: start: 20020725, end: 20021212
  54. OXYCONTIN [Suspect]
     Dosage: 1 TABLET, BID
     Route: 048
     Dates: start: 20040126, end: 20040212
  55. OXYCONTIN [Suspect]
     Indication: ARTHRALGIA
     Dosage: 80 MG, TID
     Route: 048
     Dates: start: 20000713, end: 20010109
  56. OXYCET [Suspect]
     Indication: BREAKTHROUGH PAIN
     Dosage: 1-2 TABLET, Q3H PRN
     Route: 048
     Dates: start: 20010812
  57. MORPHINE SULFATE [Concomitant]
     Indication: ARTHRALGIA
     Dosage: UNK
     Route: 042
     Dates: start: 20010801, end: 20010801
  58. TORADOL [Concomitant]
     Indication: PRODUCT USED FOR UNKNOWN INDICATION
     Dosage: UNK
     Dates: start: 20000713, end: 20010101
  59. TYLENOL (CAPLET) [Concomitant]
     Indication: ARTHRALGIA
     Route: 048
  60. VALPROIC ACID [Concomitant]
     Indication: PRODUCT USED FOR UNKNOWN INDICATION
     Dosage: 500 MG, UNK
     Route: 048
     Dates: start: 20051202
  61. HYDROMORPH CONTIN 30 MG [Suspect]
     Indication: ARTHRALGIA
     Dosage: UNK CAPSL, UNK
     Route: 048
     Dates: start: 20040531
  62. SUPEUDOL [Suspect]
     Indication: BREAKTHROUGH PAIN
     Dosage: 20 MG, BID
     Route: 048
     Dates: start: 20010712, end: 20010720
  63. SUPEUDOL [Suspect]
     Dosage: 20 MG, TID
     Route: 048
     Dates: start: 20010720, end: 20010804
  64. SEROQUEL [Concomitant]
     Indication: INSOMNIA
  65. NEURONTIN [Concomitant]
     Indication: PRODUCT USED FOR UNKNOWN INDICATION
     Dosage: 200 MG, TID
     Route: 048
     Dates: start: 20011031, end: 20011101
  66. OXYCONTIN [Suspect]
     Dosage: 8 TABLET, TID
     Route: 048
     Dates: start: 20010822, end: 20011003
  67. OXYCONTIN [Suspect]
     Dosage: 2 TABLET, DAILY PRN
     Route: 048
     Dates: start: 20020214, end: 20020725
  68. OXYCONTIN [Suspect]
     Dosage: 3 TABLET, TID
     Route: 048
     Dates: start: 20030915, end: 20031204
  69. COCAINE [Suspect]
     Indication: PRODUCT USED FOR UNKNOWN INDICATION
     Dosage: UNK
     Dates: start: 19950101, end: 19950101
  70. MS CONTIN [Concomitant]
     Indication: ARTHRALGIA
     Dosage: 1 TABLET, TID
     Route: 048
     Dates: start: 20010522, end: 20010501
  71. MS CONTIN TABLETS 60 MG [Concomitant]
     Indication: ARTHRALGIA
     Dosage: 1 TABLET, TID
     Route: 048
     Dates: start: 20010517, end: 20010501
  72. LORAZEPAM [Concomitant]
     Indication: ANXIETY
     Dosage: 2 MG, HS
     Route: 048
     Dates: start: 20040119, end: 20040212
  73. CLONAZEPAM [Concomitant]
     Indication: PRODUCT USED FOR UNKNOWN INDICATION
     Dosage: 0.5 MG, UNK
     Route: 048
     Dates: start: 20041123, end: 20051228
  74. SEROQUEL [Concomitant]
     Indication: ANXIETY
     Dosage: 100 MG, HS
     Route: 048
     Dates: start: 20020725, end: 20021212
  75. NORTRIPTYLINE HCL [Concomitant]
     Dosage: 25 MG, HS
     Route: 048
     Dates: start: 20010822, end: 20011001
  76. WELLBUTRIN [Concomitant]
     Indication: ANXIETY
     Dosage: 150 MG, BID
     Route: 048
     Dates: start: 20020725, end: 20021212
  77. IMOVANE [Concomitant]
     Indication: PRODUCT USED FOR UNKNOWN INDICATION
     Dosage: UNK
     Dates: start: 20000713, end: 20010101
  78. CEPHALEXIN [Concomitant]
     Indication: PRODUCT USED FOR UNKNOWN INDICATION
     Dosage: 500 MG, QID
     Route: 048
     Dates: start: 20010827, end: 20010902
  79. OXYCONTIN [Suspect]
     Dosage: 4 TABLET, TID
     Route: 048
     Dates: start: 20021212, end: 20030915
  80. OXYCONTIN [Suspect]
     Dosage: 1 TABLET, Q12H
     Route: 048
     Dates: start: 20040304, end: 20040315
  81. PERCOCET [Suspect]
     Dosage: 4 TABLET, DAILY PRN
     Route: 048
     Dates: start: 20030915, end: 20031204
  82. CLONAZEPAM [Concomitant]
     Dosage: 2 MG, UNK
     Dates: start: 20051228
  83. DRONABINOL [Concomitant]
     Indication: PRODUCT USED FOR UNKNOWN INDICATION
     Dosage: UNK
     Route: 055
  84. DULCOLAX [Concomitant]
     Indication: PRODUCT USED FOR UNKNOWN INDICATION
     Dosage: UNK SUPP., PRN
     Route: 054
  85. BAYCOL [Concomitant]
     Indication: PRODUCT USED FOR UNKNOWN INDICATION
     Dosage: 0.4 MG, DAILY
     Route: 048
     Dates: start: 20010406, end: 20010601

REACTIONS (3)
  - DRUG WITHDRAWAL SYNDROME [None]
  - SUBSTANCE ABUSE [None]
  - DRUG DEPENDENCE [None]
